FAERS Safety Report 25457106 (Version 4)
Quarter: 2025Q3

REPORT INFORMATION
  Report Type: Spontaneous
  Country: US (occurrence: US)
  Receive Date: 20250619
  Receipt Date: 20250704
  Transmission Date: 20251021
  Serious: No
  Sender: SANOFI AVENTIS
  Company Number: US-SA-2025SA173578

PATIENT
  Age: 23 Year
  Sex: Male

DRUGS (1)
  1. TZIELD [Suspect]
     Active Substance: TEPLIZUMAB-MZWV
     Route: 065

REACTIONS (5)
  - Injection site discolouration [Unknown]
  - Dizziness [Not Recovered/Not Resolved]
  - Flushing [Unknown]
  - Fatigue [Unknown]
  - Nausea [Unknown]

NARRATIVE: CASE EVENT DATE: 20250618
